FAERS Safety Report 10432171 (Version 1)
Quarter: 2014Q3

REPORT INFORMATION
  Report Type: Spontaneous
  Country: US (occurrence: None)
  Receive Date: 20140815
  Receipt Date: 20140815
  Transmission Date: 20150326
  Serious: No
  Sender: FDA-Public Use
  Company Number: A-US2014-98155

PATIENT
  Age: 71 Year
  Sex: Female

DRUGS (12)
  1. SYNTHROID [Concomitant]
     Active Substance: LEVOTHYROXINE SODIUM
  2. VIIBRYD [Concomitant]
     Active Substance: VILAZODONE HYDROCHLORIDE
  3. AMLODIPINE [Concomitant]
     Active Substance: AMLODIPINE BESYLATE
  4. OPSUMIT [Suspect]
     Active Substance: MACITENTAN
     Indication: PULMONARY HYPERTENSION
     Route: 048
     Dates: start: 20140225
  5. IBUPROFEN (IBUPROFEN) [Concomitant]
     Active Substance: IBUPROFEN
  6. MIRAPEX [Concomitant]
     Active Substance: PRAMIPEXOLE DIHYDROCHLORIDE
  7. APRISO (MESALAZINE) [Concomitant]
  8. FLECAINIDE (FLECAINIDE) [Concomitant]
     Active Substance: FLECAINIDE
  9. ATENOLOL (ATENOLOL) [Concomitant]
     Active Substance: ATENOLOL
  10. OMEPRAZOLE (OMEPRAZOLE) [Concomitant]
     Active Substance: OMEPRAZOLE
  11. ARTHROTEC (DICLOFENAC SODIUM, MISOPROSTOL) [Concomitant]
  12. TRIAMTERENE (TRIAMTERENE) [Concomitant]
     Active Substance: TRIAMTERENE

REACTIONS (1)
  - Dyspnoea [None]

NARRATIVE: CASE EVENT DATE: 20140226
